FAERS Safety Report 10952019 (Version 1)
Quarter: 2015Q1

REPORT INFORMATION
  Report Type: Spontaneous
  Country: US (occurrence: None)
  Receive Date: 20150324
  Receipt Date: 20150324
  Transmission Date: 20150721
  Serious: Yes (Life-Threatening, Hospitalization)
  Sender: FDA-Public Use
  Company Number: None

PATIENT
  Age: 76 Year
  Sex: Male
  Weight: 83 kg

DRUGS (9)
  1. METOPROLOL (LOPRESSOR) [Concomitant]
  2. DILTIAZEM (CARDIZEM CD) [Concomitant]
  3. LISINOPRIL (ZESTRIL) [Concomitant]
  4. FLOMAX [Concomitant]
     Active Substance: TAMSULOSIN HYDROCHLORIDE
  5. ASPIRIN 81 MG [Suspect]
     Active Substance: ASPIRIN
     Indication: CORONARY ARTERY DISEASE
     Dosage: 1 TABLETS QD ORAL
     Route: 048
  6. ALBUTEROL-IPRATROPIUM [Concomitant]
  7. RIVAROXABAN [Suspect]
     Active Substance: RIVAROXABAN
     Indication: ATRIAL FIBRILLATION
     Dosage: 1 TABLET QD ORAL
     Route: 048
  8. NAPROXEN SODIUM (ANAPROX) [Concomitant]
  9. SIMVASTATIN (ZOCOR) [Concomitant]

REACTIONS (2)
  - Haemoglobin decreased [None]
  - Gastrointestinal haemorrhage [None]

NARRATIVE: CASE EVENT DATE: 20141022
